FAERS Safety Report 5810551-0 (Version None)
Quarter: 2008Q3

REPORT INFORMATION
  Report Type: 
  Country: None (occurrence: None)
  Receive Date: 20080709
  Receipt Date: 20080604
  Transmission Date: 20090109
  Serious: Yes (Disabling)
  Sender: FDA-Public Use
  Company Number: 2007S1000234

PATIENT
  Age: 1 Month
  Sex: Female
  Weight: 1.03 kg

DRUGS (19)
  1. NITRIC OXIDE [Suspect]
     Indication: LUNG DISORDER
     Dosage: 5 PPM;CONT;INH
     Route: 055
     Dates: start: 20070914, end: 20071004
  2. NITRIC OXIDE [Suspect]
     Indication: PROPHYLAXIS
     Dosage: 5 PPM;CONT;INH
     Route: 055
     Dates: start: 20070914, end: 20071004
  3. PHENOBARBITAL TAB [Concomitant]
  4. NYSTATIN [Concomitant]
  5. GENTAMICIN [Concomitant]
  6. AMPICILLIN [Concomitant]
  7. METRONIDAZOL ^ALPHARMA^ [Concomitant]
  8. RANITIDINE HCL [Concomitant]
  9. PHENOBARBITAL TAB [Concomitant]
  10. VANCOMYCIN HCL [Concomitant]
  11. IMIPRAMINE [Concomitant]
  12. CHLORALODOL [Concomitant]
  13. FUROSEMIDE [Concomitant]
  14. ATROPINE [Concomitant]
  15. DEXAMETHASONE [Concomitant]
  16. SPIRONOLACTONE [Concomitant]
  17. MIDAZOLAM HCL [Concomitant]
  18. FENTANYL-100 [Concomitant]
  19. ATROPINE [Concomitant]

REACTIONS (1)
  - RETINOPATHY OF PREMATURITY [None]
